FAERS Safety Report 20839497 (Version 2)
Quarter: 2022Q2

REPORT INFORMATION
  Report Type: Spontaneous
  Country: JP (occurrence: JP)
  Receive Date: 20220517
  Receipt Date: 20220601
  Transmission Date: 20220721
  Serious: Yes (Other)
  Sender: FDA-Public Use
  Company Number: JP-ELI_LILLY_AND_COMPANY-JP202205005449

PATIENT
  Age: 65 Year
  Sex: Female

DRUGS (2)
  1. VERZENIO [Suspect]
     Active Substance: ABEMACICLIB
     Indication: Breast cancer metastatic
     Dosage: UNK
     Route: 048
     Dates: start: 202202
  2. FEMARA [Concomitant]
     Active Substance: LETROZOLE
     Indication: Breast cancer metastatic
     Dosage: UNK
     Dates: start: 202202

REACTIONS (4)
  - Organising pneumonia [Unknown]
  - Cardiac dysfunction [Not Recovered/Not Resolved]
  - Oedema [Unknown]
  - Malaise [Unknown]

NARRATIVE: CASE EVENT DATE: 20220401
